FAERS Safety Report 8545837-2 (Version None)
Quarter: 2012Q3

REPORT INFORMATION
  Report Type: 
  Country: None (occurrence: None)
  Receive Date: 20120727
  Receipt Date: 20111110
  Transmission Date: 20120928
  Serious: No
  Sender: FDA-Public Use
  Company Number: US-ASTRAZENECA-2011SE68643

PATIENT
  Age: 59 Year
  Sex: Female

DRUGS (2)
  1. PAXIL [Interacting]
     Route: 065
  2. SEROQUEL [Suspect]
     Indication: NEUROTRANSMITTER LEVEL ALTERED
     Route: 048

REACTIONS (4)
  - OFF LABEL USE [None]
  - DISTURBANCE IN ATTENTION [None]
  - DEREALISATION [None]
  - DRUG INTERACTION [None]
